FAERS Safety Report 14263877 (Version 6)
Quarter: 2018Q1

REPORT INFORMATION
  Report Type: Spontaneous
  Country: GB (occurrence: GB)
  Receive Date: 20171208
  Receipt Date: 20180125
  Transmission Date: 20180508
  Serious: Yes (Death)
  Sender: FDA-Public Use
  Company Number: GB-MERZ NORTH AMERICA, INC.-17MRZ-00382

PATIENT
  Age: 83 Year
  Sex: Male

DRUGS (4)
  1. CLONAZEPAM. [Concomitant]
     Active Substance: CLONAZEPAM
     Indication: PRODUCT USED FOR UNKNOWN INDICATION
     Dosage: 1 PER WEEK
  2. XEOMIN [Suspect]
     Active Substance: INCOBOTULINUMTOXINA
     Indication: TORTICOLLIS
     Route: 030
     Dates: start: 20171121, end: 20171121
  3. BOTULINUM TOXIN TYPE A HAEMAGGLUTININ COMPLEX [Concomitant]
     Indication: NEUROMUSCULAR BLOCKING THERAPY
     Dosage: 1 IN 1 TOTAL
     Route: 030
  4. XEOMIN [Suspect]
     Active Substance: INCOBOTULINUMTOXINA
     Indication: MEIGE^S SYNDROME

REACTIONS (2)
  - Off label use [Unknown]
  - Acute left ventricular failure [Fatal]

NARRATIVE: CASE EVENT DATE: 20171121
